FAERS Safety Report 6429317-6 (Version None)
Quarter: 2009Q4

REPORT INFORMATION
  Report Type: 
  Country: None (occurrence: None)
  Receive Date: 20091105
  Receipt Date: 20091028
  Transmission Date: 20100525
  Serious: Yes (Other)
  Sender: FDA-Public Use
  Company Number: US-AMGEN-QUU371667

PATIENT

DRUGS (1)
  1. ENBREL [Suspect]
     Indication: RHEUMATOID ARTHRITIS

REACTIONS (4)
  - CARBOHYDRATE ANTIGEN 125 INCREASED [None]
  - CARBOHYDRATE ANTIGEN 15-3 INCREASED [None]
  - CARBOHYDRATE ANTIGEN 27.29 INCREASED [None]
  - CARCINOEMBRYONIC ANTIGEN INCREASED [None]
